FAERS Safety Report 17697330 (Version 1)
Quarter: 2020Q2

REPORT INFORMATION
  Report Type: Spontaneous
  Country: US (occurrence: US)
  Receive Date: 20200423
  Receipt Date: 20200423
  Transmission Date: 20200714
  Serious: Yes (Death, Life-Threatening, Hospitalization, Other)
  Sender: FDA-Public Use
  Company Number: US-HIKMA PHARMACEUTICALS USA INC.-US-H14001-20-01890

PATIENT
  Sex: Male
  Weight: 187 kg

DRUGS (10)
  1. MERCAPTOPURINE. [Suspect]
     Active Substance: MERCAPTOPURINE
     Indication: PRECURSOR B-LYMPHOBLASTIC LYMPHOMA
     Route: 065
     Dates: end: 20191014
  2. RITUXIMAB. [Suspect]
     Active Substance: RITUXIMAB
     Indication: PRECURSOR B-LYMPHOBLASTIC LYMPHOMA
     Route: 065
     Dates: end: 20191122
  3. DEXAMETHASONE. [Suspect]
     Active Substance: DEXAMETHASONE
     Indication: PRECURSOR B-LYMPHOBLASTIC LYMPHOMA
     Route: 065
     Dates: end: 20191018
  4. PEGASPARGASE [Suspect]
     Active Substance: PEGASPARGASE
     Indication: PRECURSOR B-LYMPHOBLASTIC LYMPHOMA
     Route: 065
     Dates: end: 20191113
  5. CYCLOPHOSPHAMIDE. [Suspect]
     Active Substance: CYCLOPHOSPHAMIDE
     Indication: PRECURSOR B-LYMPHOBLASTIC LYMPHOMA
     Route: 065
     Dates: end: 20191008
  6. VINCRISTINE SULFATE. [Suspect]
     Active Substance: VINCRISTINE SULFATE
     Indication: PRECURSOR B-LYMPHOBLASTIC LYMPHOMA
     Route: 065
     Dates: end: 20191206
  7. DAUNORUBICIN [Suspect]
     Active Substance: DAUNORUBICIN
     Indication: PRECURSOR B-LYMPHOBLASTIC LYMPHOMA
     Route: 065
     Dates: end: 20190614
  8. INOTUZUMAB OZOGAMICIN [Suspect]
     Active Substance: INOTUZUMAB OZOGAMICIN
     Indication: PRECURSOR B-LYMPHOBLASTIC LYMPHOMA
     Route: 065
     Dates: end: 20190814
  9. CYTARABINE. [Suspect]
     Active Substance: CYTARABINE
     Indication: PRECURSOR B-LYMPHOBLASTIC LYMPHOMA
     Route: 065
     Dates: end: 20191018
  10. METHOTREXATE SODIUM. [Suspect]
     Active Substance: METHOTREXATE SODIUM
     Indication: PRECURSOR B-LYMPHOBLASTIC LYMPHOMA
     Route: 065
     Dates: end: 20191122

REACTIONS (19)
  - Acute kidney injury [Unknown]
  - Drug-induced liver injury [Unknown]
  - Cholestasis [Unknown]
  - Hepatic failure [Fatal]
  - Colitis [Unknown]
  - Chills [Unknown]
  - Hepatitis [Unknown]
  - Sinus tachycardia [Unknown]
  - Hypokalaemia [Unknown]
  - Encephalopathy [Unknown]
  - Venoocclusive liver disease [Unknown]
  - Enterocolitis infectious [Unknown]
  - Productive cough [Unknown]
  - Sepsis [Unknown]
  - Respiratory failure [Unknown]
  - Clostridium test positive [Unknown]
  - Haemodynamic instability [Unknown]
  - Intestinal ischaemia [Unknown]
  - Cholestatic liver injury [Unknown]

NARRATIVE: CASE EVENT DATE: 20191211
